FAERS Safety Report 19772878 (Version 2)
Quarter: 2021Q3

REPORT INFORMATION
  Report Type: Spontaneous
  Country: US (occurrence: US)
  Receive Date: 20210831
  Receipt Date: 20210921
  Transmission Date: 20211014
  Serious: Yes (Other)
  Sender: FDA-Public Use
  Company Number: US-LEITERS-2117882

PATIENT
  Age: 58 Year
  Sex: Male
  Weight: 128.18 kg

DRUGS (1)
  1. BEVACIZUMAB 25 MG/ML (2.5 MG/0.1 ML) REPACK INJECTION, 0.1 ML IN 1 ML [Suspect]
     Active Substance: BEVACIZUMAB
     Indication: RETINAL VEIN OCCLUSION
     Route: 047
     Dates: start: 20210806, end: 20210806

REACTIONS (1)
  - Endophthalmitis [Not Recovered/Not Resolved]

NARRATIVE: CASE EVENT DATE: 20210810
